FAERS Safety Report 13076804 (Version 1)
Quarter: 2016Q4

REPORT INFORMATION
  Report Type: Spontaneous
  Country: US (occurrence: US)
  Receive Date: 20161230
  Receipt Date: 20161230
  Transmission Date: 20170207
  Serious: No
  Sender: FDA-Public Use
  Company Number: None

PATIENT
  Age: 19 Year
  Sex: Female
  Weight: 56.25 kg

DRUGS (1)
  1. AMOX-CLAV POTASSIUM 875/125MG [Suspect]
     Active Substance: AMOXICILLIN\CLAVULANATE POTASSIUM
     Indication: ACUTE SINUSITIS
     Dosage: ?          QUANTITY:20 TABLET(S);?
     Route: 048
     Dates: start: 20161214, end: 20161217

REACTIONS (6)
  - Fungal infection [None]
  - Diarrhoea [None]
  - Dermatitis diaper [None]
  - Candida infection [None]
  - Bacterial vaginosis [None]
  - Abdominal pain upper [None]

NARRATIVE: CASE EVENT DATE: 20161220
